FAERS Safety Report 21906523 (Version 3)
Quarter: 2023Q1

REPORT INFORMATION
  Report Type: Other
  Country: CH (occurrence: CH)
  Receive Date: 20230125
  Receipt Date: 20230203
  Transmission Date: 20230417
  Serious: Yes (Hospitalization, Other)
  Sender: FDA-Public Use
  Company Number: CH-ASTELLAS-2023US002217

PATIENT
  Age: 85 Year
  Sex: Male

DRUGS (10)
  1. PROGRAF [Interacting]
     Active Substance: TACROLIMUS
     Indication: Immunosuppression
     Dosage: 0.5 MG, EVERY 12 HOURS (1-0-1)
     Route: 048
     Dates: end: 20221121
  2. PROGRAF [Interacting]
     Active Substance: TACROLIMUS
     Dosage: 0.5 MG, EVERY 12 HOURS (1-0-1)
     Route: 048
     Dates: start: 20221124
  3. PAXLOVID [Interacting]
     Active Substance: NIRMATRELVIR\RITONAVIR
     Indication: Coronavirus infection
     Dosage: 3 DF, EVERY 12 HOURS (3-0-3-0)
     Route: 048
     Dates: start: 20221111, end: 20221115
  4. ALDACTONE [Suspect]
     Active Substance: SPIRONOLACTONE
     Indication: Product used for unknown indication
     Dosage: 25 MG, ONCE DAILY (1-0-0-0)
     Route: 048
     Dates: end: 20221119
  5. TAMSULOSIN [Concomitant]
     Active Substance: TAMSULOSIN
     Indication: Product used for unknown indication
     Dosage: 0.5 MG, ONCE DAILY (24 HOURS) (1-0-0-0)
     Route: 048
  6. ASS CARDIO SPIRIG [Concomitant]
     Indication: Product used for unknown indication
     Dosage: 100 MG, ONCE DAILY (1-0-0 24 HOURS)
     Route: 048
  7. CLOPIDOGREL HYDROCHLORIDE [Concomitant]
     Active Substance: CLOPIDOGREL HYDROCHLORIDE
     Indication: Product used for unknown indication
     Dosage: 75 MG, ONCE DAILY (24 HOURS)
     Route: 048
  8. SODIUM CHONDROITIN SULFATE [Concomitant]
     Active Substance: SODIUM CHONDROITIN SULFATE
     Indication: Product used for unknown indication
     Dosage: 800 MG, ONCE DAILY (24 HOURS)
     Route: 048
  9. BENSERAZIDE HYDROCHLORIDE\LEVODOPA [Concomitant]
     Active Substance: BENSERAZIDE HYDROCHLORIDE\LEVODOPA
     Indication: Product used for unknown indication
     Dosage: 125 MG, EVERY 8 HOURS (1-1-1-0)
     Route: 048
  10. AZATHIOPRINE [Concomitant]
     Active Substance: AZATHIOPRINE
     Indication: Immunosuppression
     Dosage: 100 MG, ONCE DAILY (EVERY 24 HOURS)
     Route: 048

REACTIONS (6)
  - Immunosuppressant drug level increased [Recovered/Resolved]
  - Acute kidney injury [Recovered/Resolved]
  - Diarrhoea [Recovered/Resolved]
  - Hyperkalaemia [Recovered/Resolved]
  - Drug interaction [Recovered/Resolved]
  - Drug interaction [Recovered/Resolved]

NARRATIVE: CASE EVENT DATE: 20221111
